FAERS Safety Report 20427979 (Version 2)
Quarter: 2023Q1

REPORT INFORMATION
  Report Type: Other
  Country: US (occurrence: US)
  Receive Date: 20220204
  Receipt Date: 20230210
  Transmission Date: 20230418
  Serious: No
  Sender: FDA-Public Use
  Company Number: US-NEUROCRINE BIOSCIENCES INC.-2022NBI00557

PATIENT

DRUGS (4)
  1. INGREZZA [Suspect]
     Active Substance: VALBENAZINE
     Indication: Tardive dyskinesia
     Dosage: 40 MILLIGRAM, QD
     Route: 048
     Dates: start: 20220412
  2. INGREZZA [Suspect]
     Active Substance: VALBENAZINE
     Dosage: 40MG 1QOD ALTERNATING WITH 2 QOD
     Route: 048
     Dates: start: 20220217, end: 20220411
  3. INGREZZA [Suspect]
     Active Substance: VALBENAZINE
     Dosage: 40 MILLIGRAM, QD
     Route: 048
     Dates: start: 20210915, end: 20220216
  4. INGREZZA [Suspect]
     Active Substance: VALBENAZINE
     Dosage: 80 MILLIGRAM, QD
     Route: 048
     Dates: start: 20210408, end: 20210914

REACTIONS (3)
  - Dyskinesia [Unknown]
  - Therapeutic product effect incomplete [Recovered/Resolved]
  - Off label use [Unknown]
